FAERS Safety Report 7578925-8 (Version None)
Quarter: 2011Q2

REPORT INFORMATION
  Report Type: 
  Country: None (occurrence: None)
  Receive Date: 20110628
  Receipt Date: 20101120
  Transmission Date: 20111010
  Serious: Yes (Other)
  Sender: FDA-Public Use
  Company Number: PHHY2010DE78967

PATIENT
  Age: 2 Year
  Sex: Male

DRUGS (3)
  1. RITALIN [Suspect]
     Indication: ATTENTION DEFICIT/HYPERACTIVITY DISORDER
     Dosage: 0.41 MG/KG
  2. RITALIN [Suspect]
     Dosage: 1.4 MG/KG
  3. RITALIN [Suspect]
     Dosage: 1.1 MG/KG

REACTIONS (6)
  - DECREASED APPETITE [None]
  - ARTHRALGIA [None]
  - WEIGHT DECREASED [None]
  - PAIN IN EXTREMITY [None]
  - KNEE DEFORMITY [None]
  - INSOMNIA [None]
